FAERS Safety Report 5130213-5 (Version None)
Quarter: 2006Q4

REPORT INFORMATION
  Report Type: 
  Country: None (occurrence: None)
  Receive Date: 20061019
  Receipt Date: 20061004
  Transmission Date: 20070319
  Serious: Yes (Hospitalization)
  Sender: FDA-Public Use
  Company Number: CA-JNJFOC-20061001192

PATIENT
  Sex: Male

DRUGS (4)
  1. REMICADE [Suspect]
  2. REMICADE [Suspect]
     Indication: PSORIASIS
  3. BENEDRYL [Concomitant]
     Indication: PREMEDICATION
     Route: 048
  4. SOLU-CORTEF [Concomitant]
     Indication: PREMEDICATION

REACTIONS (6)
  - ARTHRITIS [None]
  - CHEST DISCOMFORT [None]
  - HYPERSENSITIVITY [None]
  - INFUSION RELATED REACTION [None]
  - MALAISE [None]
  - MUSCLE SPASMS [None]
